FAERS Safety Report 19910689 (Version 1)
Quarter: 2021Q4

REPORT INFORMATION
  Report Type: Spontaneous
  Country: FR (occurrence: FR)
  Receive Date: 20211004
  Receipt Date: 20211004
  Transmission Date: 20220303
  Serious: Yes (Death, Other)
  Sender: FDA-Public Use
  Company Number: FR-AFSSAPS-MA20213535

PATIENT
  Age: 63 Year
  Sex: Female

DRUGS (1)
  1. QUETIAPINE [Suspect]
     Active Substance: QUETIAPINE
     Indication: Psychotic disorder
     Dosage: 400 MILLIGRAM, ONCE A DAY (TRAITEMENT AU LONG COURS)
     Route: 048

REACTIONS (1)
  - Distal intestinal obstruction syndrome [Fatal]

NARRATIVE: CASE EVENT DATE: 20210821
